FAERS Safety Report 6912919-8 (Version None)
Quarter: 2010Q3

REPORT INFORMATION
  Report Type: 
  Country: None (occurrence: None)
  Receive Date: 20100806
  Receipt Date: 20090324
  Transmission Date: 20110219
  Serious: No
  Sender: FDA-Public Use
  Company Number: US-PFIZER INC-2009184787

PATIENT
  Age: 67 Year
  Sex: Female

DRUGS (1)
  1. DETROL [Suspect]

REACTIONS (2)
  - RETCHING [None]
  - VOMITING [None]
